FAERS Safety Report 16731005 (Version 1)
Quarter: 2019Q3

REPORT INFORMATION
  Report Type: Spontaneous
  Country: US (occurrence: US)
  Receive Date: 20190822
  Receipt Date: 20190822
  Transmission Date: 20191005
  Serious: No
  Sender: FDA-Public Use
  Company Number: US-TEVA-2019-US-1095120

PATIENT

DRUGS (1)
  1. OXYBUTYNIN IR [Suspect]
     Active Substance: OXYBUTYNIN
     Dosage: IR
     Route: 065

REACTIONS (2)
  - Xerosis [Unknown]
  - Drug hypersensitivity [Unknown]
